FAERS Safety Report 7828794-3 (Version None)
Quarter: 2011Q4

REPORT INFORMATION
  Report Type: 
  Country: None (occurrence: None)
  Receive Date: 20111020
  Receipt Date: 20111005
  Transmission Date: 20120403
  Serious: No
  Sender: FDA-Public Use
  Company Number: US-B.I. PHARMACEUTICALS,INC./RIDGEFIELD-2011-BP-20941BP

PATIENT
  Age: 70 Year
  Sex: Female

DRUGS (4)
  1. ASPIRIN [Concomitant]
     Dosage: 81 MG
  2. SPIRIVA [Suspect]
     Indication: DYSPNOEA
  3. LISINOPRIL AND HYDROCHLOROTHIAZIDE [Concomitant]
  4. SPIRIVA [Suspect]
     Indication: CHRONIC OBSTRUCTIVE PULMONARY DISEASE
     Dosage: 18 MCG
     Route: 055
     Dates: start: 20110826

REACTIONS (5)
  - TONGUE COATED [None]
  - TONGUE DISORDER [None]
  - GLOSSODYNIA [None]
  - PARAESTHESIA ORAL [None]
  - SWOLLEN TONGUE [None]
